FAERS Safety Report 15568383 (Version 1)
Quarter: 2018Q4

REPORT INFORMATION
  Report Type: Spontaneous
  Country: US (occurrence: US)
  Receive Date: 20181031
  Receipt Date: 20181031
  Transmission Date: 20190205
  Serious: Yes (Hospitalization, Other)
  Sender: FDA-Public Use
  Company Number: US-UNICHEM PHARMACEUTICALS (USA) INC-UCM201810-000287

PATIENT
  Age: 30 Year
  Sex: Female

DRUGS (5)
  1. LAMOTRIGINE. [Suspect]
     Active Substance: LAMOTRIGINE
  2. QUETIAPINE. [Suspect]
     Active Substance: QUETIAPINE
  3. AMITRIPTYLINE [Suspect]
     Active Substance: AMITRIPTYLINE
  4. PROPRANOLOL [Suspect]
     Active Substance: PROPRANOLOL HYDROCHLORIDE
  5. PRAZOSIN. [Suspect]
     Active Substance: PRAZOSIN

REACTIONS (5)
  - Hypotension [Recovered/Resolved]
  - Overdose [Unknown]
  - Circulatory collapse [Recovered/Resolved]
  - Coma scale [Recovered/Resolved]
  - Atrioventricular block first degree [Recovered/Resolved]
